FAERS Safety Report 12641138 (Version 2)
Quarter: 2016Q4

REPORT INFORMATION
  Report Type: Spontaneous
  Country: US (occurrence: US)
  Receive Date: 20160810
  Receipt Date: 20161011
  Transmission Date: 20170207
  Serious: Yes (Other)
  Sender: FDA-Public Use
  Company Number: US-SAOL THERAPEUTICS-2016SAO00359

PATIENT
  Age: 19 Year
  Sex: Female

DRUGS (2)
  1. LIORESAL [Suspect]
     Active Substance: BACLOFEN
     Indication: MUSCLE SPASTICITY
     Dosage: 130 ?G, \DAY
     Route: 037
  2. LIORESAL [Suspect]
     Active Substance: BACLOFEN
     Indication: CEREBRAL PALSY

REACTIONS (12)
  - Post lumbar puncture syndrome [Unknown]
  - Implant site extravasation [Unknown]
  - Device dislocation [Unknown]
  - Cerebrospinal fluid leakage [Unknown]
  - Muscle spasticity [Unknown]
  - Gait disturbance [Unknown]
  - Therapeutic response decreased [Unknown]
  - Scar [Unknown]
  - Medical device discomfort [Unknown]
  - Implant site swelling [Unknown]
  - Intracranial pressure increased [Unknown]
  - Laboratory test abnormal [Unknown]

NARRATIVE: CASE EVENT DATE: 20141208
